FAERS Safety Report 23929533 (Version 1)
Quarter: 2024Q2

REPORT INFORMATION
  Report Type: Spontaneous
  Country: US (occurrence: US)
  Receive Date: 20240601
  Receipt Date: 20240601
  Transmission Date: 20240716
  Serious: No
  Sender: FDA-Public Use
  Company Number: US-RADIUS HEALTH INC.-2024US001900

PATIENT
  Sex: Female

DRUGS (4)
  1. TYMLOS [Suspect]
     Active Substance: ABALOPARATIDE
     Indication: Osteoporosis
     Dosage: 80 MICROGRAM, QD
     Route: 058
     Dates: start: 20240323
  2. ENALAPRIL [Concomitant]
     Active Substance: ENALAPRIL
     Indication: Product used for unknown indication
     Dosage: UNK
  3. HYDROCODONE BITARTRATE AND ACETAMINOPHEN [Concomitant]
     Active Substance: ACETAMINOPHEN\HYDROCODONE BITARTRATE
     Indication: Product used for unknown indication
     Dosage: UNK
  4. URSODIOL [Concomitant]
     Active Substance: URSODIOL
     Indication: Product used for unknown indication
     Dosage: UNK

REACTIONS (7)
  - Spinal fracture [Not Recovered/Not Resolved]
  - Loss of personal independence in daily activities [Not Recovered/Not Resolved]
  - Depressed mood [Not Recovered/Not Resolved]
  - Injection site reaction [Not Recovered/Not Resolved]
  - Nausea [Not Recovered/Not Resolved]
  - Pain [Recovered/Resolved]
  - Product dose omission issue [Unknown]
